FAERS Safety Report 7623627-2 (Version None)
Quarter: 2011Q3

REPORT INFORMATION
  Report Type: 
  Country: None (occurrence: None)
  Receive Date: 20110719
  Receipt Date: 20110719
  Transmission Date: 20111222
  Serious: No
  Sender: FDA-Public Use
  Company Number: None

PATIENT
  Age: 80 Year
  Sex: Female
  Weight: 70.3075 kg

DRUGS (1)
  1. PRADAXA [Suspect]
     Indication: ATRIAL FIBRILLATION
     Dosage: 1 PILL 2X DAILY PO
     Route: 048
     Dates: start: 20110406, end: 20110412

REACTIONS (4)
  - PRURITUS [None]
  - INSOMNIA [None]
  - HEADACHE [None]
  - APHASIA [None]
